FAERS Safety Report 8226743-X (Version None)
Quarter: 2012Q1

REPORT INFORMATION
  Report Type: 
  Country: None (occurrence: None)
  Receive Date: 20120322
  Receipt Date: 20120314
  Transmission Date: 20120608
  Serious: Yes (Other)
  Sender: FDA-Public Use
  Company Number: US-BAYER-201031215NA

PATIENT
  Age: 38 Year
  Sex: Female

DRUGS (9)
  1. ATIVAN [Concomitant]
     Dosage: 1 MG, UNK
     Route: 048
  2. AMBIEN [Concomitant]
     Indication: INSOMNIA
     Dosage: UNK UNK, HS, 5-10 MG
     Route: 048
  3. DEPO-PROVERA [Concomitant]
     Dosage: 150 MG, UNK
  4. PHENTERMINE [Concomitant]
  5. YASMIN [Suspect]
     Indication: CONTRACEPTION
     Dosage: UNK
     Route: 048
     Dates: start: 20050101, end: 20080101
  6. CELEXA [Concomitant]
     Indication: DEPRESSION
  7. VICODIN [Concomitant]
  8. VISTARIL [Concomitant]
     Indication: ANXIETY
     Dosage: 25 MG, UNK
     Route: 048
  9. CELEBREX [Concomitant]
     Dosage: 200 MG, BID

REACTIONS (5)
  - THROMBOSIS [None]
  - VARICOSE VEIN [None]
  - THROMBOPHLEBITIS [None]
  - DEEP VEIN THROMBOSIS [None]
  - BLEEDING VARICOSE VEIN [None]
